FAERS Safety Report 10085822 (Version 1)
Quarter: 2014Q2

REPORT INFORMATION
  Report Type: Spontaneous
  Country: US (occurrence: US)
  Receive Date: 20140418
  Receipt Date: 20140418
  Transmission Date: 20141212
  Serious: No
  Sender: FDA-Public Use
  Company Number: US-PFIZER INC-2014107907

PATIENT
  Sex: 0

DRUGS (2)
  1. XANAX [Suspect]
     Indication: MUSCLE SPASMS
     Dosage: UNK
  2. XANAX [Suspect]
     Dosage: LOWERING THE DOSE

REACTIONS (2)
  - Drug withdrawal syndrome [Unknown]
  - Off label use [Unknown]
